FAERS Safety Report 10583828 (Version 4)
Quarter: 2015Q1

REPORT INFORMATION
  Report Type: Spontaneous
  Country: JP (occurrence: JP)
  Receive Date: 20141114
  Receipt Date: 20150203
  Transmission Date: 20150720
  Serious: Yes (Other)
  Sender: FDA-Public Use
  Company Number: JP-AMGEN-JPNSP2014088299

PATIENT
  Age: 81 Year
  Sex: Male
  Weight: 60 kg

DRUGS (6)
  1. PREDONINE [Concomitant]
     Active Substance: PREDNISOLONE\PREDNISOLONE ACETATE\PREDNISOLONE SODIUM SUCCINATE
     Indication: IMMUNE THROMBOCYTOPENIC PURPURA
     Dosage: 10 MG, QD
     Route: 048
     Dates: start: 20140129, end: 20140328
  2. MEROPEN                            /01250501/ [Concomitant]
     Active Substance: MEROPENEM
     Indication: POST PROCEDURAL INFECTION
     Dosage: 0.5 G, BID
     Route: 041
     Dates: start: 20140318, end: 20140325
  3. NONTHRON [Concomitant]
     Indication: ANTITHROMBIN III DECREASED
     Dosage: 1500 IU, UNK
     Route: 065
  4. KENKETU GLOVENIN-I [Concomitant]
     Active Substance: HUMAN IMMUNOGLOBULIN G
     Dosage: 5 G, UNK
     Route: 065
  5. ALBUMIN [Concomitant]
     Active Substance: ALBUMIN (HUMAN)
     Indication: HYPOALBUMINAEMIA
     Dosage: 100 ML, UNK
     Route: 065
  6. ROMIPLATE [Suspect]
     Active Substance: ROMIPLOSTIM
     Indication: IMMUNE THROMBOCYTOPENIC PURPURA
     Dosage: 60 MUG/KG, QWK
     Route: 058
     Dates: start: 20140129, end: 20140319

REACTIONS (4)
  - Splenic vein thrombosis [Recovering/Resolving]
  - Antithrombin III decreased [Recovering/Resolving]
  - Hypoalbuminaemia [Recovering/Resolving]
  - Post procedural infection [Recovering/Resolving]

NARRATIVE: CASE EVENT DATE: 20140315
